FAERS Safety Report 19236064 (Version 1)
Quarter: 2021Q2

REPORT INFORMATION
  Report Type: Spontaneous
  Country: JP (occurrence: JP)
  Receive Date: 20210510
  Receipt Date: 20210510
  Transmission Date: 20210717
  Serious: Yes (Hospitalization)
  Sender: FDA-Public Use
  Company Number: JP-SUN PHARMACEUTICAL INDUSTRIES LTD-2021RR-293247

PATIENT
  Age: 55 Year
  Sex: Male

DRUGS (8)
  1. PREDNISOLONE TAKEDA PHARMACEUTICAL [Suspect]
     Active Substance: PREDNISOLONE
     Dosage: 40 MILLIGRAM, DAILY
     Route: 065
  2. CYCLOPHOSPHAMIDE. [Suspect]
     Active Substance: CYCLOPHOSPHAMIDE
     Indication: INTERSTITIAL LUNG DISEASE
     Dosage: 500 MILLIGRAM, 300 MG/MM2
     Route: 065
  3. PREDNISOLONE TAKEDA PHARMACEUTICAL [Suspect]
     Active Substance: PREDNISOLONE
     Indication: DERMATOMYOSITIS
     Dosage: 15 MILLIGRAM, DAILY
     Route: 065
  4. PREDNISOLONE TAKEDA PHARMACEUTICAL [Suspect]
     Active Substance: PREDNISOLONE
     Dosage: 60 MILLIGRAM (1 MG/KG)
  5. METHOTREXATE AYUMI PHARMACEUTICAL [Suspect]
     Active Substance: METHOTREXATE
     Indication: DERMATOMYOSITIS
     Dosage: 8 MILLIGRAM, WEEKLY
     Route: 065
  6. COTRIMOXAZOLE [Suspect]
     Active Substance: SULFAMETHOXAZOLE\TRIMETHOPRIM
     Indication: INTERSTITIAL LUNG DISEASE
     Dosage: A HALF?STRENGTH TABLET
     Route: 065
  7. PROGRAF [Suspect]
     Active Substance: TACROLIMUS
     Indication: INTERSTITIAL LUNG DISEASE
     Dosage: 5 MILLIGRAM, DAILY
     Route: 065
  8. TOFACITINIB PFIZER [Suspect]
     Active Substance: TOFACITINIB
     Indication: INTERSTITIAL LUNG DISEASE
     Dosage: 5 MILLIGRAM, BID
     Route: 065

REACTIONS (6)
  - Dyspnoea [Unknown]
  - Skin ulcer [Unknown]
  - Lymphopenia [Unknown]
  - Furuncle [Unknown]
  - Therapy partial responder [Unknown]
  - Off label use [Unknown]
